FAERS Safety Report 15836171 (Version 1)
Quarter: 2019Q1

REPORT INFORMATION
  Report Type: Spontaneous
  Country: US (occurrence: US)
  Receive Date: 20190117
  Receipt Date: 20190117
  Transmission Date: 20190417
  Serious: Yes (Death)
  Sender: FDA-Public Use
  Company Number: US-INSYS THERAPEUTICS, INC-INS201901-000289

PATIENT
  Age: 49 Year
  Sex: Male

DRUGS (8)
  1. FENTANYL. [Suspect]
     Active Substance: FENTANYL
     Indication: PRODUCT USED FOR UNKNOWN INDICATION
     Route: 051
     Dates: start: 2017
  2. HEROIN [Suspect]
     Active Substance: DIAMORPHINE
     Route: 051
     Dates: start: 2017
  3. BENZODIAZEPINE [Suspect]
     Active Substance: BENZODIAZEPINE
     Route: 051
     Dates: start: 2017
  4. HEROIN [Suspect]
     Active Substance: DIAMORPHINE
     Dates: start: 2017
  5. MARIJUANA [Suspect]
     Active Substance: CANNABIS SATIVA SUBSP. INDICA TOP
     Route: 051
     Dates: start: 2017
  6. MARIJUANA [Suspect]
     Active Substance: CANNABIS SATIVA SUBSP. INDICA TOP
     Dates: start: 2017
  7. BENZODIAZEPINE [Suspect]
     Active Substance: BENZODIAZEPINE
     Dates: start: 2017
  8. FENTANYL. [Suspect]
     Active Substance: FENTANYL
     Dates: start: 2017

REACTIONS (2)
  - Cardio-respiratory arrest [Fatal]
  - Incorrect route of product administration [Unknown]

NARRATIVE: CASE EVENT DATE: 2017
